FAERS Safety Report 8282351-6 (Version None)
Quarter: 2012Q2

REPORT INFORMATION
  Report Type: 
  Country: None (occurrence: None)
  Receive Date: 20120413
  Receipt Date: 20120410
  Transmission Date: 20120825
  Serious: Yes (Hospitalization)
  Sender: FDA-Public Use
  Company Number: FR-PFIZER INC-2012088697

PATIENT
  Age: 41 Year
  Sex: Male

DRUGS (12)
  1. NOVORAPID [Concomitant]
     Dosage: UNK
     Route: 058
     Dates: start: 20111229
  2. CIPROFLOXACIN HYDROCHLORIDE [Concomitant]
     Dosage: 1500 MG, 1X/DAY
     Route: 048
     Dates: start: 20120105, end: 20120105
  3. LOVENOX [Concomitant]
     Dosage: UNK
     Route: 058
     Dates: start: 20120130, end: 20120201
  4. ASPIRIN [Concomitant]
     Dosage: UNK
     Route: 048
     Dates: start: 20111230
  5. RAMIPRIL [Concomitant]
     Dosage: 2.5 MG, 1X/DAY
     Route: 048
     Dates: start: 20111220
  6. TAZOCILLINE [Suspect]
     Dosage: 12 G, 1X/DAY
     Route: 042
     Dates: start: 20111229, end: 20120105
  7. ACETAMINOPHEN [Suspect]
     Dosage: 2 G, 1X/DAY
     Route: 048
     Dates: start: 20120103, end: 20120105
  8. AZACTAM [Concomitant]
     Dosage: 1 G, 3X/DAY
     Route: 042
     Dates: start: 20120105
  9. ACUPAN [Concomitant]
     Dosage: 40 MG, 1X/DAY
     Route: 048
     Dates: start: 20120103, end: 20120201
  10. CIPROFLOXACIN HYDROCHLORIDE [Suspect]
     Dosage: 1200 MG, 1X/DAY
     Route: 042
     Dates: start: 20111229, end: 20120104
  11. NOVOMIX [Concomitant]
     Dosage: 64 IU, 1X/DAY
     Route: 058
     Dates: start: 20000101
  12. FLAGYL [Concomitant]
     Dosage: 1.5 MG, 1X/DAY
     Dates: start: 20120105, end: 20120113

REACTIONS (1)
  - BONE MARROW FAILURE [None]
